FAERS Safety Report 8513851-9 (Version None)
Quarter: 2012Q3

REPORT INFORMATION
  Report Type: 
  Country: None (occurrence: None)
  Receive Date: 20120705
  Receipt Date: 20120622
  Transmission Date: 20120928
  Serious: Yes (Other)
  Sender: FDA-Public Use
  Company Number: 2012SP035262

PATIENT
  Sex: Male

DRUGS (3)
  1. PEG-INTRON [Suspect]
     Indication: HEPATITIS C
     Dates: start: 20120106, end: 20120612
  2. RIBAVIRIN [Suspect]
     Indication: HEPATITIS C
     Dates: start: 20120106, end: 20120112
  3. TELAPREVIR [Suspect]
     Indication: HEPATITIS C
     Dates: start: 20120106, end: 20120612

REACTIONS (1)
  - TRANSFUSION [None]
